FAERS Safety Report 9773155 (Version 2)
Quarter: 2014Q1

REPORT INFORMATION
  Report Type: Spontaneous
  Country: TW (occurrence: TW)
  Receive Date: 20131219
  Receipt Date: 20140114
  Transmission Date: 20141002
  Serious: Yes (Death, Hospitalization, Other)
  Sender: FDA-Public Use
  Company Number: TW-TAKEDA-2013TUS003239

PATIENT
  Sex: 0

DRUGS (1)
  1. COLCHICINE [Suspect]
     Indication: GOUT
     Dosage: 60 TABLETS OF 0.5 MG COLCHICINE IN A SUICIDE ATTEMPT

REACTIONS (12)
  - Multi-organ failure [Fatal]
  - Suicide attempt [Unknown]
  - Oliguria [Unknown]
  - Metabolic acidosis [Unknown]
  - Renal failure acute [Unknown]
  - Toxicity to various agents [Unknown]
  - Pyrexia [Unknown]
  - Rhabdomyolysis [Unknown]
  - Abdominal pain [Unknown]
  - Pancytopenia [Unknown]
  - Vomiting [Unknown]
  - Diarrhoea [Unknown]
